FAERS Safety Report 4389539-5 (Version None)
Quarter: 2004Q2

REPORT INFORMATION
  Report Type: 
  Country: None (occurrence: None)
  Receive Date: 20040628
  Receipt Date: 20040614
  Transmission Date: 20050107
  Serious: Yes (Life-Threatening)
  Sender: FDA-Public Use
  Company Number: 04P-056-0263963-00

PATIENT
  Age: 2 Year
  Sex: Male

DRUGS (3)
  1. SEVOFLURANE [Suspect]
     Indication: ANAESTHESIA
     Dosage: 8%, INHALATION
     Route: 055
     Dates: start: 20040521, end: 20040521
  2. BUPIVACAINE [Concomitant]
  3. LIDOCAINE HYDROCHLORIDE [Concomitant]

REACTIONS (11)
  - AUTONOMIC NERVOUS SYSTEM IMBALANCE [None]
  - CARDIAC ARREST [None]
  - CYTOLYTIC HEPATITIS [None]
  - ENDOTRACHEAL INTUBATION COMPLICATION [None]
  - ERYTHEMA [None]
  - HYPERGLYCAEMIA [None]
  - HYPERTHERMIA MALIGNANT [None]
  - HYPERTONIA [None]
  - HYPONATRAEMIA [None]
  - HYPOTONIA [None]
  - SOMNOLENCE [None]
